FAERS Safety Report 7179928-8 (Version None)
Quarter: 2010Q4

REPORT INFORMATION
  Report Type: 
  Country: None (occurrence: None)
  Receive Date: 20101221
  Receipt Date: 20101213
  Transmission Date: 20110411
  Serious: Yes (Life-Threatening)
  Sender: FDA-Public Use
  Company Number: AU-ACTELION-A-CH2010-42737

PATIENT
  Sex: Male
  Weight: 79.8 kg

DRUGS (3)
  1. TRACLEER [Suspect]
     Indication: PULMONARY HYPERTENSION
     Dosage: 62.5 MG, BID
     Route: 048
     Dates: start: 20080325, end: 20101214
  2. TRACLEER [Suspect]
     Dosage: 125 MG, BID
     Route: 048
     Dates: start: 20101215
  3. SILDENAFIL [Concomitant]

REACTIONS (6)
  - CARDIAC OUTPUT DECREASED [None]
  - LOSS OF CONSCIOUSNESS [None]
  - PULMONARY HYPERTENSION [None]
  - RESUSCITATION [None]
  - RIGHT VENTRICULAR DYSFUNCTION [None]
  - SYNCOPE [None]
